FAERS Safety Report 8092060-4 (Version None)
Quarter: 2012Q1

REPORT INFORMATION
  Report Type: 
  Country: None (occurrence: None)
  Receive Date: 20120129
  Receipt Date: 20111108
  Transmission Date: 20120608
  Serious: No
  Sender: FDA-Public Use
  Company Number: US-ABBOTT-11P-163-0872864-00

PATIENT
  Sex: Female
  Weight: 74.91 kg

DRUGS (3)
  1. METHOTREXATE [Concomitant]
     Indication: RHEUMATOID ARTHRITIS
  2. HUMIRA [Suspect]
     Dates: start: 20090101, end: 20100101
  3. HUMIRA [Suspect]
     Indication: RHEUMATOID ARTHRITIS
     Dates: start: 20070101, end: 20090101

REACTIONS (4)
  - DRUG INEFFECTIVE [None]
  - ARTHRITIS [None]
  - JOINT EFFUSION [None]
  - RHEUMATOID NODULE [None]
